FAERS Safety Report 9343716 (Version 1)
Quarter: 2013Q2

REPORT INFORMATION
  Report Type: Spontaneous
  Country: ES (occurrence: None)
  Receive Date: 20130610
  Receipt Date: 20130610
  Transmission Date: 20140414
  Serious: Yes (Other)
  Sender: FDA-Public Use
  Company Number: 1737659

PATIENT
  Age: 61 Year
  Sex: Male

DRUGS (1)
  1. PACLITAXEL [Suspect]
     Indication: LARGE CELL LUNG CANCER
     Dosage: 340 MG MILLIGRAM (S) (UNKNOWN) INTRAVENOUS (NOT OTHERWISE SPECIFIED)
     Route: 042
     Dates: start: 20120116, end: 20120116

REACTIONS (3)
  - Muscle spasms [None]
  - Pain [None]
  - Back pain [None]
